FAERS Safety Report 6389602-3 (Version None)
Quarter: 2009Q4

REPORT INFORMATION
  Report Type: 
  Country: None (occurrence: None)
  Receive Date: 20091006
  Receipt Date: 20091002
  Transmission Date: 20100525
  Serious: Yes (Other)
  Sender: FDA-Public Use
  Company Number: GR-ABBOTT-08P-066-0451794-00

PATIENT
  Age: 65 Year
  Sex: Female

DRUGS (4)
  1. HUMIRA [Suspect]
     Indication: ANKYLOSING SPONDYLITIS
     Route: 058
     Dates: start: 20070301, end: 20080201
  2. VASTAREL [Concomitant]
     Indication: DIZZINESS
     Route: 048
  3. TENORETIC 100 [Concomitant]
     Indication: HYPERTENSION
     Route: 048
  4. CORTICOSTEROIDS [Concomitant]
     Indication: ANKYLOSING SPONDYLITIS

REACTIONS (2)
  - UTERINE PROLAPSE [None]
  - VAGINAL HAEMORRHAGE [None]
